FAERS Safety Report 9856546 (Version 2)
Quarter: 2014Q1

REPORT INFORMATION
  Report Type: Spontaneous
  Country: US (occurrence: US)
  Receive Date: 20140130
  Receipt Date: 20140227
  Transmission Date: 20141002
  Serious: Yes (Hospitalization, Other)
  Sender: FDA-Public Use
  Company Number: US-GILEAD-2014-0093198

PATIENT
  Age: 66 Year
  Sex: Female
  Weight: 161.4 kg

DRUGS (15)
  1. LETAIRIS [Suspect]
     Indication: PULMONARY ARTERIAL HYPERTENSION
     Dosage: 5 MG, QD
     Route: 048
     Dates: start: 200804
  2. REMODULIN [Suspect]
     Indication: PULMONARY ARTERIAL HYPERTENSION
     Dosage: 26640 ?G/KG, QD
     Route: 058
     Dates: start: 20130914
  3. REMODULIN [Suspect]
     Dosage: UNK
     Route: 042
  4. REVATIO [Suspect]
     Indication: PULMONARY ARTERIAL HYPERTENSION
     Dosage: 120 MG, UNK
     Route: 048
     Dates: start: 200803
  5. COUMADIN                           /00014802/ [Concomitant]
  6. LIPITOR [Concomitant]
  7. TYVASO [Concomitant]
  8. SENSIPAR [Concomitant]
  9. ASPIRIN [Concomitant]
  10. PROCRIT                            /00928302/ [Concomitant]
  11. PROAMATINE [Concomitant]
  12. PRAVASTATIN [Concomitant]
  13. RENAGEL                            /01459902/ [Concomitant]
  14. OXYGEN [Concomitant]
     Dosage: 3.5 L, UNK
  15. OXYGEN [Concomitant]
     Dosage: 5 L, UNK

REACTIONS (4)
  - Blood pressure decreased [Not Recovered/Not Resolved]
  - Bladder cancer [Unknown]
  - Hypotension [Not Recovered/Not Resolved]
  - Dyspnoea [Not Recovered/Not Resolved]
